FAERS Safety Report 5820304-5 (Version None)
Quarter: 2008Q3

REPORT INFORMATION
  Report Type: 
  Country: None (occurrence: None)
  Receive Date: 20080724
  Receipt Date: 20070605
  Transmission Date: 20090109
  Serious: No
  Sender: FDA-Public Use
  Company Number: A0654228A

PATIENT
  Age: 61 Year
  Sex: Male

DRUGS (6)
  1. AVANDIA [Suspect]
     Dosage: 8MG UNKNOWN
     Route: 048
  2. METFORMIN [Concomitant]
  3. AVAPRO [Concomitant]
  4. PRAVASTATIN [Concomitant]
  5. GLYBURIDE [Concomitant]
  6. INDOMETHACIN [Concomitant]

REACTIONS (1)
  - WEIGHT INCREASED [None]
